FAERS Safety Report 13889634 (Version 1)
Quarter: 2017Q3

REPORT INFORMATION
  Report Type: Spontaneous
  Country: US (occurrence: US)
  Receive Date: 20170822
  Receipt Date: 20170822
  Transmission Date: 20171127
  Serious: No
  Sender: FDA-Public Use
  Company Number: US-ROCHE-1166265

PATIENT
  Sex: Male
  Weight: 75.82 kg

DRUGS (1)
  1. ACTEMRA [Suspect]
     Active Substance: TOCILIZUMAB
     Indication: RHEUMATOID ARTHRITIS
     Route: 042
     Dates: start: 20111031, end: 20120515

REACTIONS (2)
  - Drug intolerance [Unknown]
  - Fatigue [Not Recovered/Not Resolved]
